FAERS Safety Report 7130670-9 (Version None)
Quarter: 2010Q4

REPORT INFORMATION
  Report Type: 
  Country: None (occurrence: None)
  Receive Date: 20101201
  Receipt Date: 20101118
  Transmission Date: 20110411
  Serious: Yes (Hospitalization)
  Sender: FDA-Public Use
  Company Number: FR-CELGENEUS-056-C5013-10101444

PATIENT
  Sex: Male
  Weight: 93 kg

DRUGS (26)
  1. CC-5013 [Suspect]
     Indication: MULTIPLE MYELOMA
     Route: 048
     Dates: start: 20090922
  2. CC-5013 [Suspect]
     Route: 048
     Dates: start: 20100923, end: 20101013
  3. DEXAMETHASONE [Suspect]
     Indication: MULTIPLE MYELOMA
     Route: 065
     Dates: start: 20090922
  4. DEXAMETHASONE [Suspect]
     Route: 065
     Dates: start: 20100923, end: 20101013
  5. KARDEGIC [Suspect]
     Indication: THROMBOSIS PROPHYLAXIS
     Route: 065
     Dates: start: 20101021
  6. APROVEL [Concomitant]
     Indication: HYPERTENSION
     Route: 065
     Dates: start: 20070401
  7. CELECTOL [Concomitant]
     Indication: HYPERTENSION
     Route: 065
     Dates: start: 20070401
  8. AMAREL [Concomitant]
     Route: 065
     Dates: start: 20070401, end: 20101020
  9. AMAREL [Concomitant]
     Route: 065
     Dates: start: 20101021
  10. LESCOL [Concomitant]
     Route: 065
     Dates: start: 20070401
  11. LASIX [Concomitant]
     Indication: HYPERTENSION
     Route: 065
     Dates: start: 20070401
  12. LASIX [Concomitant]
     Indication: NEPHROPATHY
  13. DIFFU K [Concomitant]
     Route: 065
     Dates: start: 20080101
  14. COVERSYL [Concomitant]
     Indication: HYPERTENSION
     Route: 065
     Dates: start: 20090321
  15. TAMSULOSIN HCL [Concomitant]
     Route: 065
     Dates: start: 20060101
  16. PARACETAMOL [Concomitant]
     Indication: HEADACHE
     Route: 065
     Dates: start: 20090905
  17. PARACETAMOL [Concomitant]
  18. GLUCOR [Concomitant]
     Route: 065
     Dates: start: 20070101
  19. GLUCOPHAGE [Concomitant]
     Route: 065
     Dates: start: 20091012
  20. ASPEGIC 1000 [Concomitant]
     Indication: THROMBOSIS PROPHYLAXIS
     Route: 065
     Dates: start: 20090922
  21. ZOPICLONE [Concomitant]
     Indication: INSOMNIA
     Route: 065
     Dates: start: 20100325
  22. MORPHINE [Concomitant]
     Route: 065
     Dates: start: 20100720
  23. DOMPERIDONE [Concomitant]
     Route: 065
     Dates: start: 20100720
  24. TARDYFERON [Concomitant]
     Route: 065
     Dates: start: 20100801
  25. TOPALGIC [Concomitant]
     Route: 065
     Dates: start: 20100801
  26. ARIXTRA [Concomitant]
     Indication: THROMBOSIS PROPHYLAXIS
     Route: 065
     Dates: start: 20100801

REACTIONS (1)
  - CEREBRAL INFARCTION [None]
